FAERS Safety Report 5384032-5 (Version None)
Quarter: 2007Q3

REPORT INFORMATION
  Report Type: 
  Country: None (occurrence: None)
  Receive Date: 20070711
  Receipt Date: 20070706
  Transmission Date: 20080115
  Serious: Yes (Hospitalization)
  Sender: FDA-Public Use
  Company Number: NL-ASTRAZENECA-2007AC01058

PATIENT
  Age: 53 Year
  Sex: Male

DRUGS (5)
  1. SELOKEEN ZOC [Suspect]
     Indication: ARRHYTHMIA
     Route: 048
     Dates: start: 20070101
  2. SELOKEEN ZOC [Suspect]
     Route: 048
     Dates: start: 20070101
  3. NEDIOS [Concomitant]
  4. LIPITOR [Concomitant]
  5. ASCAL [Concomitant]

REACTIONS (1)
  - WEIGHT DECREASED [None]
